FAERS Safety Report 7505707-5 (Version None)
Quarter: 2011Q2

REPORT INFORMATION
  Report Type: 
  Country: None (occurrence: None)
  Receive Date: 20110526
  Receipt Date: 20110520
  Transmission Date: 20111010
  Serious: Yes (Other)
  Sender: FDA-Public Use
  Company Number: US-PFIZER INC-2011109018

PATIENT
  Sex: Female
  Weight: 72.562 kg

DRUGS (2)
  1. SYNTHROID [Concomitant]
     Indication: HYPOTHYROIDISM
     Dosage: 115 UG, DAILY
     Route: 048
  2. ADVIL CONGESTION RELIEF [Suspect]
     Indication: HEADACHE
     Dosage: UNK
     Route: 048
     Dates: start: 20110510

REACTIONS (4)
  - RASH [None]
  - SWELLING FACE [None]
  - URTICARIA [None]
  - LIP SWELLING [None]
